FAERS Safety Report 9492714 (Version 2)
Quarter: 2013Q4

REPORT INFORMATION
  Report Type: Spontaneous
  Country: US (occurrence: US)
  Receive Date: 20130830
  Receipt Date: 20131010
  Transmission Date: 20140711
  Serious: No
  Sender: FDA-Public Use
  Company Number: US-PFIZER INC-2013247508

PATIENT
  Age: 70 Year
  Sex: Female
  Weight: 58.96 kg

DRUGS (2)
  1. LEVOXYL [Suspect]
     Indication: HYPOTHYROIDISM
     Dosage: 0.075 MG, 1X/DAY
     Dates: start: 1997, end: 201212
  2. SYNTHROID [Suspect]
     Indication: HYPOTHYROIDISM
     Dosage: 0.075 MG, 1X/DAY
     Dates: start: 201305

REACTIONS (2)
  - Dysphonia [Not Recovered/Not Resolved]
  - Drug ineffective [Unknown]
